FAERS Safety Report 7361381-2 (Version None)
Quarter: 2011Q1

REPORT INFORMATION
  Report Type: 
  Country: None (occurrence: None)
  Receive Date: 20110318
  Receipt Date: 20110309
  Transmission Date: 20110831
  Serious: Yes (Other)
  Sender: FDA-Public Use
  Company Number: US-BAYER-201034887NA

PATIENT
  Sex: Female

DRUGS (2)
  1. NEXAVAR [Suspect]
     Indication: RENAL CELL CARCINOMA
     Dosage: 400 MG, BID
     Route: 048
     Dates: start: 20100901, end: 20100901
  2. NEXAVAR [Suspect]
     Dosage: 400 MG, QD
     Route: 048

REACTIONS (6)
  - SQUAMOUS CELL CARCINOMA OF SKIN [None]
  - HYPOPHOSPHATAEMIA [None]
  - BLOOD BILIRUBIN INCREASED [None]
  - FATIGUE [None]
  - MENTAL IMPAIRMENT [None]
  - RASH [None]
